FAERS Safety Report 6537499-0 (Version None)
Quarter: 2010Q1

REPORT INFORMATION
  Report Type: 
  Country: None (occurrence: None)
  Receive Date: 20100114
  Receipt Date: 20091218
  Transmission Date: 20100710
  Serious: No
  Sender: FDA-Public Use
  Company Number: US-BAYER-201010042BCC

PATIENT
  Age: 69 Year
  Sex: Female
  Weight: 73 kg

DRUGS (1)
  1. ALEVE [Suspect]
     Indication: BACK PAIN
     Dosage: UNIT DOSE: 220 MG
     Route: 048

REACTIONS (1)
  - ABDOMINAL DISCOMFORT [None]
